FAERS Safety Report 21973236 (Version 2)
Quarter: 2023Q1

REPORT INFORMATION
  Report Type: Spontaneous
  Country: US (occurrence: US)
  Receive Date: 20230209
  Receipt Date: 20230228
  Transmission Date: 20230417
  Serious: No
  Sender: FDA-Public Use
  Company Number: US-SA-SAC20230207001244

PATIENT
  Age: 22 Year
  Sex: Male
  Weight: 115.6 kg

DRUGS (1)
  1. DUPIXENT [Suspect]
     Active Substance: DUPILUMAB
     Indication: Dermatitis allergic
     Dosage: 300 MG, QOW
     Route: 058
     Dates: start: 20230123

REACTIONS (5)
  - Dry skin [Not Recovered/Not Resolved]
  - Thirst [Not Recovered/Not Resolved]
  - Rebound eczema [Unknown]
  - Skin atrophy [Unknown]
  - Rash pruritic [Unknown]

NARRATIVE: CASE EVENT DATE: 20230101
